FAERS Safety Report 19137689 (Version 2)
Quarter: 2021Q2

REPORT INFORMATION
  Report Type: Spontaneous
  Country: US (occurrence: US)
  Receive Date: 20210414
  Receipt Date: 20210505
  Transmission Date: 20210717
  Serious: Yes (Death, Hospitalization)
  Sender: FDA-Public Use
  Company Number: 2020SGN02816

PATIENT
  Sex: Female

DRUGS (2)
  1. XELODA [Concomitant]
     Active Substance: CAPECITABINE
     Indication: BREAST CANCER FEMALE
  2. TUKYSA [Suspect]
     Active Substance: TUCATINIB
     Indication: BREAST CANCER FEMALE
     Dosage: 150 MG
     Route: 048

REACTIONS (9)
  - Diarrhoea [Unknown]
  - Electrolyte imbalance [Unknown]
  - Pain in extremity [Recovered/Resolved]
  - Fatigue [Unknown]
  - Neuropathy peripheral [Unknown]
  - Tumour excision [Unknown]
  - Death [Fatal]
  - Skin discolouration [Unknown]
  - Nail disorder [Unknown]
